FAERS Safety Report 4333782-8 (Version None)
Quarter: 2004Q2

REPORT INFORMATION
  Report Type: 
  Country: None (occurrence: None)
  Receive Date: 20040402
  Receipt Date: 20040324
  Transmission Date: 20050107
  Serious: Yes (Disabling)
  Sender: FDA-Public Use
  Company Number: HQ4794316AUG2001

PATIENT
  Age: 18 Year
  Sex: Female

DRUGS (2)
  1. DIMETAPP [Suspect]
     Indication: NASOPHARYNGITIS
     Dosage: ORAL
     Route: 048
     Dates: start: 19981201
  2. ALKA-SELTZER PLUS COLD (ACETYLSALICYLIC ACID/CHLORPHENAMINE MALEATE/PH [Suspect]
     Dosage: ORAL
     Route: 048
     Dates: start: 19981201

REACTIONS (10)
  - AMNESIA [None]
  - BLOOD PRESSURE INCREASED [None]
  - CEREBROVASCULAR ACCIDENT [None]
  - MASTOIDITIS [None]
  - NASAL CYST [None]
  - PARESIS [None]
  - POLYTRAUMATISM [None]
  - THROMBOSIS [None]
  - TRANSIENT ISCHAEMIC ATTACK [None]
  - VISUAL ACUITY REDUCED [None]
